FAERS Safety Report 9382730 (Version 1)
Quarter: 2013Q3

REPORT INFORMATION
  Report Type: Spontaneous
  Country: IT (occurrence: IT)
  Receive Date: 20130703
  Receipt Date: 20130703
  Transmission Date: 20140515
  Serious: Yes (Hospitalization)
  Sender: FDA-Public Use
  Company Number: IT-MERCK-1307ITA000086

PATIENT
  Age: 69 Year
  Sex: Male
  Weight: 74 kg

DRUGS (3)
  1. RIBAVIRIN [Suspect]
     Indication: CHRONIC HEPATITIS C
     Dosage: 1000 MG DAILY
     Route: 048
     Dates: start: 20130323
  2. PEGINTERFERON ALFA-2A [Interacting]
     Indication: CHRONIC HEPATITIS C
     Dosage: 180 MICROGRAM, QW
     Dates: start: 20130323
  3. TELAPREVIR [Interacting]
     Indication: CHRONIC HEPATITIS C
     Dosage: 2.25 G DAILY
     Route: 048
     Dates: start: 20130323

REACTIONS (2)
  - Anaemia [Not Recovered/Not Resolved]
  - Drug interaction [Not Recovered/Not Resolved]
